FAERS Safety Report 13535489 (Version 2)
Quarter: 2017Q2

REPORT INFORMATION
  Report Type: Report from Study
  Country: FR (occurrence: FR)
  Receive Date: 20170511
  Receipt Date: 20170522
  Transmission Date: 20170830
  Serious: Yes (Hospitalization)
  Sender: FDA-Public Use
  Company Number: FR-ROCHE-1931721

PATIENT
  Age: 75 Year
  Sex: Female
  Weight: 73 kg

DRUGS (7)
  1. BACTRIM [Concomitant]
     Active Substance: SULFAMETHOXAZOLE\TRIMETHOPRIM
     Route: 065
  2. VITAMIN A [Concomitant]
     Active Substance: VITAMIN A
  3. ZELITREX [Concomitant]
     Active Substance: VALACYCLOVIR HYDROCHLORIDE
     Route: 065
  4. ORACILLINE [Concomitant]
     Active Substance: PENICILLIN V
     Route: 065
  5. OBINUTUZUMAB [Suspect]
     Active Substance: OBINUTUZUMAB
     Indication: DIFFUSE LARGE B-CELL LYMPHOMA REFRACTORY
     Dosage: CYCLE 1, CYCLE 2 WAS GIVEN ON DAY 1 OUT OF 28 DAY CYCLE
     Route: 042
     Dates: start: 20161020, end: 20170301
  6. CC-122 [Suspect]
     Active Substance: INVESTIGATIONAL PRODUCT
     Indication: DIFFUSE LARGE B-CELL LYMPHOMA REFRACTORY
     Dosage: CYCLE 1?MOST RECENT DOSE ON 27/FEB/2017
     Route: 048
     Dates: start: 20161019
  7. TOPALGIC (FRANCE) [Concomitant]
     Active Substance: TRAMADOL
     Route: 065

REACTIONS (1)
  - Progressive multifocal leukoencephalopathy [Recovered/Resolved]

NARRATIVE: CASE EVENT DATE: 20170302
